FAERS Safety Report 8308850-6 (Version None)
Quarter: 2012Q2

REPORT INFORMATION
  Report Type: 
  Country: None (occurrence: None)
  Receive Date: 20120424
  Receipt Date: 20120419
  Transmission Date: 20120825
  Serious: Yes (Disabling)
  Sender: FDA-Public Use
  Company Number: JP-BRACCO-000961

PATIENT
  Sex: Male
  Weight: 56 kg

DRUGS (24)
  1. FLOMOX [Concomitant]
     Route: 048
     Dates: start: 20080709, end: 20080711
  2. OLOPATADINE HCL [Concomitant]
     Route: 048
     Dates: start: 20080712, end: 20080729
  3. PROHANCE [Suspect]
     Indication: NUCLEAR MAGNETIC RESONANCE IMAGING BRAIN
     Route: 042
     Dates: start: 20080717, end: 20080717
  4. ATARAX [Concomitant]
     Route: 048
     Dates: start: 20080716, end: 20080729
  5. OMEPRAZOLE [Concomitant]
     Route: 048
     Dates: start: 20080808, end: 20080816
  6. MEGLUMINE GADOPENTETATE [Suspect]
     Indication: METASTASES TO LYMPH NODES
     Route: 042
     Dates: start: 20080729, end: 20080729
  7. LASIX [Concomitant]
     Route: 042
     Dates: start: 20080730
  8. NEUROTROPIN [Concomitant]
     Route: 065
     Dates: start: 20080709, end: 20080728
  9. ZEFNART [Concomitant]
  10. LENDORMIN [Concomitant]
     Route: 048
     Dates: start: 20080715, end: 20080729
  11. ATARAX [Concomitant]
     Route: 048
     Dates: start: 20080801, end: 20080812
  12. ANTEBATE [Concomitant]
     Route: 065
  13. DIGOXIN                            /00017701/ [Concomitant]
     Route: 048
     Dates: start: 20080601, end: 20080730
  14. WARFARIN SODIUM [Concomitant]
     Route: 048
     Dates: end: 20080729
  15. CELESTAMINE TAB [Concomitant]
     Route: 048
     Dates: end: 20080729
  16. PYRAZOLONES [Concomitant]
     Route: 065
  17. SELBEX [Concomitant]
     Route: 048
     Dates: end: 20080729
  18. LENDORMIN [Concomitant]
     Route: 048
     Dates: start: 20080801, end: 20080812
  19. OMEPRAZOLE [Concomitant]
     Route: 065
     Dates: start: 20080802, end: 20080807
  20. UNASYN ORAL                        /00903601/ [Concomitant]
     Route: 048
     Dates: start: 20080802, end: 20080806
  21. LOXONIN [Concomitant]
     Route: 048
     Dates: start: 20080709, end: 20080711
  22. ADALAT CC [Concomitant]
     Route: 048
     Dates: start: 20080801, end: 20080812
  23. STRONG NEO-MINOPHAGEN C [Concomitant]
     Route: 065
     Dates: start: 20080709, end: 20080728
  24. MEGLUMINE GADOPENTETATE [Suspect]
     Indication: DIAGNOSTIC PROCEDURE
     Route: 042
     Dates: start: 20080729, end: 20080729

REACTIONS (1)
  - NEPHROGENIC SYSTEMIC FIBROSIS [None]
